FAERS Safety Report 25933541 (Version 1)
Quarter: 2025Q4

REPORT INFORMATION
  Report Type: Spontaneous
  Country: US (occurrence: US)
  Receive Date: 20251017
  Receipt Date: 20251017
  Transmission Date: 20260118
  Serious: No
  Sender: ORPHALAN
  Company Number: US-ORPHALAN-US-ORP-25-00148

PATIENT
  Age: 20 Year
  Sex: Male
  Weight: 63.8 kg

DRUGS (1)
  1. CUVRIOR [Suspect]
     Active Substance: TRIENTINE TETRAHYDROCHLORIDE
     Indication: Hepato-lenticular degeneration
     Dosage: 900 MILLIGRAM, QD, IN THE MORNING, 900 MILLIGRAM IN THE EVENING
     Route: 048
     Dates: start: 20250610

REACTIONS (1)
  - Off label use [Unknown]

NARRATIVE: CASE EVENT DATE: 20250610
